FAERS Safety Report 4933412-8 (Version None)
Quarter: 2006Q1

REPORT INFORMATION
  Report Type: 
  Country: None (occurrence: None)
  Receive Date: 20060306
  Receipt Date: 20050712
  Transmission Date: 20060701
  Serious: Yes (Death)
  Sender: FDA-Public Use
  Company Number: US-GLAXOSMITHKLINE-A0566773A

PATIENT
  Sex: Male

DRUGS (5)
  1. WELLBUTRIN XL [Suspect]
     Indication: DRUG USE FOR UNKNOWN INDICATION
     Dosage: 150MG PER DAY
     Route: 048
     Dates: start: 20050502, end: 20050501
  2. PAXIL [Suspect]
     Indication: ANXIETY
     Dosage: 10MG AT NIGHT
     Route: 048
     Dates: start: 20050503, end: 20050501
  3. KLONOPIN [Concomitant]
     Indication: ANXIETY
     Dates: start: 20050503, end: 20050501
  4. NITROGLYCERIN [Concomitant]
     Dates: start: 20050501, end: 20050501
  5. ADVIL [Concomitant]
     Dates: end: 20050501

REACTIONS (7)
  - ANXIETY [None]
  - COMPLETED SUICIDE [None]
  - DEPRESSION [None]
  - DRUG INEFFECTIVE [None]
  - FATIGUE [None]
  - FEAR [None]
  - PANIC ATTACK [None]
